FAERS Safety Report 4380464-2 (Version None)
Quarter: 2004Q2

REPORT INFORMATION
  Report Type: 
  Country: None (occurrence: None)
  Receive Date: 20040614
  Receipt Date: 20040602
  Transmission Date: 20050107
  Serious: Yes (Other)
  Sender: FDA-Public Use
  Company Number: 2004037632

PATIENT
  Age: 14 Year
  Sex: Female
  Weight: 37.195 kg

DRUGS (17)
  1. ZYRTEC [Suspect]
     Indication: HYPERSENSITIVITY
     Dosage: 10 MG (10 MG, 1 IN 1 D), ORAL
     Route: 048
     Dates: start: 20040101
  2. SALBUTAMOL (SALBUTAMOL) [Concomitant]
  3. DORNASE ALFA (DORNASE ALFA) [Concomitant]
  4. SERETIDE MITE (FLUTICASONE PROPIONATE, SALMETEROL XINAFOATE) [Concomitant]
  5. PANCREATIN TRIPLE STRENGTH CAP [Concomitant]
  6. ESOMEPRAZOLE (ESOMEPRAZOLE) [Concomitant]
  7. MONTELUKAST SODIUM (MONTELUKAST SODIUM) [Concomitant]
  8. SOMATROPIN (SOMATROPIN) [Concomitant]
  9. TOBRAMYCIN [Concomitant]
  10. COLISTIN (COLISTIN) [Concomitant]
  11. ASCORBIC ACID [Concomitant]
  12. VITAMINS (VITAMINS) [Concomitant]
  13. SELENIUM (SELENIUM) [Concomitant]
  14. MACROGOL (MACROGOL) [Concomitant]
  15. ERGOCALCIFEROL (ERGOCALCIFEROL) [Concomitant]
  16. TOCOPHEROL CONCENTRATE CAP [Concomitant]
  17. PHYTONADIONE [Concomitant]

REACTIONS (3)
  - BRONCHOSPASM [None]
  - COUGH [None]
  - RESPIRATORY DISORDER [None]
